FAERS Safety Report 8061250-9 (Version None)
Quarter: 2012Q1

REPORT INFORMATION
  Report Type: 
  Country: None (occurrence: None)
  Receive Date: 20120120
  Receipt Date: 20110728
  Transmission Date: 20120608
  Serious: No
  Sender: FDA-Public Use
  Company Number: US-ALLERGAN-1110191US

PATIENT
  Age: 69 Year
  Sex: Female

DRUGS (4)
  1. RESTASIS [Suspect]
     Indication: CORNEAL DYSTROPHY
     Dosage: 1 GTT, BID
     Route: 047
  2. RESTASIS [Suspect]
     Indication: DRY EYE
     Dosage: 2 GTT, BID
     Route: 047
     Dates: end: 20110727
  3. REFRESH P.M. [Concomitant]
     Indication: CORNEAL DYSTROPHY
     Dosage: UNK
     Route: 047
  4. REFRESH TEARS [Concomitant]
     Indication: CORNEAL DYSTROPHY
     Dosage: 2 DF, TID
     Route: 047

REACTIONS (1)
  - HERPES ZOSTER OPHTHALMIC [None]
